FAERS Safety Report 5023635-4 (Version None)
Quarter: 2006Q2

REPORT INFORMATION
  Report Type: 
  Country: None (occurrence: None)
  Receive Date: 20060606
  Receipt Date: 20060524
  Transmission Date: 20061013
  Serious: Yes (Hospitalization, Other)
  Sender: FDA-Public Use
  Company Number: 225277

PATIENT
  Age: 66 Year
  Sex: Male

DRUGS (6)
  1. AVASTIN [Suspect]
     Indication: COLORECTAL CANCER METASTATIC
  2. SENOKOT [Concomitant]
  3. NEXIUM [Concomitant]
  4. LISINOPRIL [Concomitant]
  5. METOPROLOL TARTRATE [Concomitant]
  6. PERCOCET [Concomitant]

REACTIONS (4)
  - CEREBROVASCULAR DISORDER [None]
  - CONVULSION [None]
  - HYPERTENSIVE CRISIS [None]
  - REVERSIBLE POSTERIOR LEUKOENCEPHALOPATHY SYNDROME [None]
